FAERS Safety Report 19841080 (Version 1)
Quarter: 2021Q3

REPORT INFORMATION
  Report Type: Other
  Country: US (occurrence: US)
  Receive Date: 20210916
  Receipt Date: 20210916
  Transmission Date: 20211014
  Serious: No
  Sender: FDA-Public Use
  Company Number: US-LEADIANT BIOSCIENCES INC-2021STPI000002

PATIENT
  Sex: Male

DRUGS (3)
  1. NEXIUM [Concomitant]
     Active Substance: ESOMEPRAZOLE MAGNESIUM
  2. METOPROLOL. [Concomitant]
     Active Substance: METOPROLOL
  3. MATULANE [Suspect]
     Active Substance: PROCARBAZINE HYDROCHLORIDE
     Indication: BRAIN NEOPLASM MALIGNANT
     Dosage: 50 MG, ALTERNATE 2 CAPSULES AND 3 CAPSULES,QD FOR 14 DAYS, STARTING ON DAY 8 TO 21
     Route: 048
     Dates: start: 20201020

REACTIONS (1)
  - Urticaria [Not Recovered/Not Resolved]
